FAERS Safety Report 12238863 (Version 2)
Quarter: 2016Q3

REPORT INFORMATION
  Report Type: Spontaneous
  Country: US (occurrence: US)
  Receive Date: 20160405
  Receipt Date: 20160930
  Transmission Date: 20161109
  Serious: Yes (Disabling, Other)
  Sender: FDA-Public Use
  Company Number: US-009507513-98120686

PATIENT
  Sex: Male

DRUGS (1)
  1. PROPECIA [Suspect]
     Active Substance: FINASTERIDE
     Indication: ALOPECIA
     Dosage: 1 MG, QD
     Route: 048
     Dates: start: 199801, end: 19980810

REACTIONS (8)
  - Breast enlargement [Not Recovered/Not Resolved]
  - Penis injury [Unknown]
  - Sexual dysfunction [Not Recovered/Not Resolved]
  - Loss of libido [Unknown]
  - Brain injury [Unknown]
  - Erectile dysfunction [Not Recovered/Not Resolved]
  - Hormone level abnormal [Unknown]
  - Haemorrhoid operation [Unknown]

NARRATIVE: CASE EVENT DATE: 199807
